FAERS Safety Report 5064200-2 (Version None)
Quarter: 2006Q3

REPORT INFORMATION
  Report Type: 
  Country: None (occurrence: None)
  Receive Date: 20060728
  Receipt Date: 20050922
  Transmission Date: 20061208
  Serious: No
  Sender: FDA-Public Use
  Company Number: US-GLAXOSMITHKLINE-A0575456A

PATIENT
  Age: 82 Year
  Sex: Female

DRUGS (2)
  1. ZANTAC [Suspect]
     Route: 048
  2. VIOXX [Concomitant]

REACTIONS (2)
  - BREATH ALCOHOL TEST POSITIVE [None]
  - DRUG INEFFECTIVE [None]
